FAERS Safety Report 6234813-0 (Version None)
Quarter: 2009Q2

REPORT INFORMATION
  Report Type: 
  Country: None (occurrence: None)
  Receive Date: 20090615
  Receipt Date: 20090421
  Transmission Date: 20091009
  Serious: No
  Sender: FDA-Public Use
  Company Number: DSA_33551_2009

PATIENT
  Sex: Male

DRUGS (3)
  1. XENAZINE [Suspect]
     Indication: HUNTINGTON'S CHOREA
     Dosage: DF, A HALF TO ONE TABLET TWICE A DAY
     Dates: start: 20090101, end: 20090401
  2. XENAZINE [Suspect]
     Indication: HUNTINGTON'S CHOREA
     Dosage: DF, A HALF TO ONE TABLET TWICE A DAY
     Dates: start: 20090101
  3. RISPERDAL [Concomitant]

REACTIONS (6)
  - CONDITION AGGRAVATED [None]
  - DIARRHOEA [None]
  - EXCESSIVE EYE BLINKING [None]
  - HEADACHE [None]
  - SCREAMING [None]
  - TIC [None]
